FAERS Safety Report 25149187 (Version 2)
Quarter: 2025Q2

REPORT INFORMATION
  Report Type: Spontaneous
  Country: FR (occurrence: FR)
  Receive Date: 20250402
  Receipt Date: 20250411
  Transmission Date: 20250717
  Serious: Yes (Hospitalization, Other)
  Sender: CHEPLAPHARM
  Company Number: None

PATIENT
  Age: 63 Year
  Sex: Male
  Weight: 93 kg

DRUGS (29)
  1. OLANZAPINE [Interacting]
     Active Substance: OLANZAPINE
     Indication: Major depression
     Dosage: DAILY DOSE: 240 MILLIGRAM
     Route: 048
     Dates: start: 20240515, end: 20240613
  2. OLANZAPINE [Interacting]
     Active Substance: OLANZAPINE
     Indication: Major depression
     Dosage: DAILY DOSE: 5 MILLIGRAM
     Route: 048
     Dates: start: 20240531, end: 20240604
  3. OLANZAPINE [Interacting]
     Active Substance: OLANZAPINE
     Indication: Major depression
     Dosage: DAILY DOSE: 10 MILLIGRAM
     Route: 048
     Dates: start: 20240605, end: 20240607
  4. OLANZAPINE [Interacting]
     Active Substance: OLANZAPINE
     Indication: Major depression
     Dosage: DAILY DOSE: 15 MILLIGRAM
     Route: 048
     Dates: start: 20240608, end: 20240610
  5. OLANZAPINE [Interacting]
     Active Substance: OLANZAPINE
     Indication: Major depression
     Dosage: DAILY DOSE: 10 MILLIGRAM
     Route: 048
     Dates: start: 20240611, end: 20240613
  6. RISPERIDONE [Interacting]
     Active Substance: RISPERIDONE
     Indication: Major depression
     Dosage: DAILY DOSE: 2 MILLIGRAM
     Route: 048
     Dates: start: 202403, end: 20240613
  7. RISPERIDONE [Interacting]
     Active Substance: RISPERIDONE
     Indication: Major depression
     Dosage: DAILY DOSE: 1 MILLIGRAM
     Route: 048
     Dates: start: 20240404, end: 20240408
  8. RISPERIDONE [Interacting]
     Active Substance: RISPERIDONE
     Indication: Major depression
     Dosage: DAILY DOSE: 2 MILLIGRAM
     Route: 048
     Dates: start: 20240409, end: 20240417
  9. RISPERIDONE [Interacting]
     Active Substance: RISPERIDONE
     Indication: Major depression
     Dosage: DAILY DOSE: 3 MILLIGRAM
     Route: 048
     Dates: start: 20240418, end: 20240502
  10. RISPERIDONE [Interacting]
     Active Substance: RISPERIDONE
     Indication: Major depression
     Dosage: DAILY DOSE: 4 MILLIGRAM
     Route: 048
     Dates: start: 20240504, end: 20240513
  11. RISPERIDONE [Interacting]
     Active Substance: RISPERIDONE
     Indication: Major depression
     Dosage: DAILY DOSE: 6 MILLIGRAM
     Route: 048
     Dates: start: 20240514, end: 20240517
  12. RISPERIDONE [Interacting]
     Active Substance: RISPERIDONE
     Indication: Major depression
     Dosage: DAILY DOSE: 8 MILLIGRAM
     Route: 048
     Dates: start: 20240518, end: 20240531
  13. RISPERIDONE [Interacting]
     Active Substance: RISPERIDONE
     Indication: Major depression
     Dosage: DAILY DOSE: 6 MILLIGRAM
     Route: 048
     Dates: start: 20240601, end: 20240604
  14. RISPERIDONE [Interacting]
     Active Substance: RISPERIDONE
     Indication: Major depression
     Dosage: DAILY DOSE: 4 MILLIGRAM
     Route: 048
     Dates: start: 20240605, end: 20240607
  15. RISPERIDONE [Interacting]
     Active Substance: RISPERIDONE
     Indication: Major depression
     Dosage: DAILY DOSE: 2 MILLIGRAM
     Route: 048
     Dates: start: 20240608, end: 20240613
  16. ANAFRANIL [Interacting]
     Active Substance: CLOMIPRAMINE HYDROCHLORIDE
     Indication: Major depression
     Dosage: DAILY DOSE: 100 MILLIGRAM
     Route: 048
     Dates: start: 202403, end: 20240613
  17. ANAFRANIL [Interacting]
     Active Substance: CLOMIPRAMINE HYDROCHLORIDE
     Indication: Major depression
     Dosage: DAILY DOSE: 25 MILLIGRAM
     Route: 048
     Dates: start: 20240522, end: 20240526
  18. ANAFRANIL [Interacting]
     Active Substance: CLOMIPRAMINE HYDROCHLORIDE
     Indication: Major depression
     Dosage: DAILY DOSE: 75 MILLIGRAM
     Route: 048
     Dates: start: 20240527, end: 20240531
  19. ANAFRANIL [Interacting]
     Active Substance: CLOMIPRAMINE HYDROCHLORIDE
     Indication: Major depression
     Dosage: DAILY DOSE: 100 MILLIGRAM
     Route: 048
     Dates: start: 20240601, end: 20240610
  20. ANAFRANIL [Interacting]
     Active Substance: CLOMIPRAMINE HYDROCHLORIDE
     Indication: Major depression
     Dosage: DAILY DOSE: 75 MILLIGRAM
     Route: 048
     Dates: start: 20240611, end: 20240613
  21. ANAFRANIL [Interacting]
     Active Substance: CLOMIPRAMINE HYDROCHLORIDE
     Indication: Major depression
     Dosage: END OF 05/2024: ANAFRANIL DOSAGE INCREASED TO 100 MG/D?DAILY DOSE: 100 MILLIGRAM
     Route: 048
  22. TROPATEPINE HYDROCHLORIDE [Suspect]
     Active Substance: TROPATEPINE HYDROCHLORIDE
     Indication: Tremor
     Dosage: DAILY DOSE: 30 MILLIGRAM
     Route: 048
     Dates: start: 20240607, end: 20240611
  23. TROPATEPINE HYDROCHLORIDE [Suspect]
     Active Substance: TROPATEPINE HYDROCHLORIDE
     Indication: Tremor
     Dosage: DAILY DOSE: 10 MILLIGRAM
     Route: 048
     Dates: start: 20240619, end: 20240620
  24. LOXAPINE [Concomitant]
     Active Substance: LOXAPINE
     Indication: Delirium
     Route: 048
     Dates: start: 20240608, end: 20240608
  25. ATORVASTATIN [Concomitant]
     Active Substance: ATORVASTATIN
     Indication: Hypertension
     Dosage: DAILY DOSE: 10 MILLIGRAM
     Route: 048
  26. BISOPROLOL FUMARATE [Concomitant]
     Active Substance: BISOPROLOL FUMARATE
     Indication: Hypertension
     Dosage: DAILY DOSE: 10 MILLIGRAM
     Route: 048
  27. DOLIPRANE [Concomitant]
     Active Substance: ACETAMINOPHEN
     Indication: Pyrexia
     Dosage: DAILY DOSE: 3 GRAM
     Route: 048
  28. HYDROCHLOROTHIAZIDE [Concomitant]
     Active Substance: HYDROCHLOROTHIAZIDE
     Indication: Hypertension
     Dosage: DAILY DOSE: 12.5 MILLIGRAM
     Route: 048
  29. OXAZEPAM [Concomitant]
     Active Substance: OXAZEPAM
     Indication: Mixed anxiety and depressive disorder
     Dosage: DAILY DOSE: 30 MILLIGRAM
     Route: 048

REACTIONS (3)
  - Neuroleptic malignant syndrome [Recovered/Resolved]
  - Drug interaction [Recovered/Resolved]
  - Multiple organ dysfunction syndrome [Unknown]

NARRATIVE: CASE EVENT DATE: 20240608
